FAERS Safety Report 11437031 (Version 1)
Quarter: 2015Q3

REPORT INFORMATION
  Report Type: Spontaneous
  Country: US (occurrence: US)
  Receive Date: 20150821
  Receipt Date: 20150821
  Transmission Date: 20151125
  Serious: Yes (Hospitalization)
  Sender: FDA-Public Use
  Company Number: US-ELI_LILLY_AND_COMPANY-US200701005022

PATIENT
  Age: 55 Year
  Sex: Female
  Weight: 51.25 kg

DRUGS (5)
  1. CYMBALTA [Suspect]
     Active Substance: DULOXETINE HYDROCHLORIDE
     Indication: PAIN
     Dosage: 20 MG, 2/D
     Dates: start: 20070108, end: 200701
  2. CIPROZOL [Interacting]
     Active Substance: CIPROFLOXACIN HYDROCHLORIDE
     Indication: INFECTION
  3. OXYCONTIN [Concomitant]
     Active Substance: OXYCODONE HYDROCHLORIDE
     Dosage: 10 MG, 2/D
  4. OXYCODONE [Concomitant]
     Active Substance: OXYCODONE
     Indication: BREAKTHROUGH PAIN
     Dosage: 5 MG, AS NEEDED
  5. ESTROGEN W/TESTOSTERONE [Concomitant]
     Indication: HORMONE REPLACEMENT THERAPY
     Dosage: UNK, DAILY (1/D)

REACTIONS (6)
  - Pyrexia [Recovered/Resolved]
  - Chills [Recovered/Resolved]
  - Potentiating drug interaction [Recovered/Resolved]
  - Malaise [Recovered/Resolved]
  - Nausea [Recovered/Resolved]
  - Dizziness [Recovered/Resolved]

NARRATIVE: CASE EVENT DATE: 20070108
